FAERS Safety Report 10213848 (Version 2)
Quarter: 2014Q2

REPORT INFORMATION
  Report Type: Spontaneous
  Country: US (occurrence: US)
  Receive Date: 20140603
  Receipt Date: 20140612
  Transmission Date: 20141212
  Serious: No
  Sender: FDA-Public Use
  Company Number: US-PFIZER INC-2014150390

PATIENT
  Age: 63 Year
  Sex: Male
  Weight: 103.1 kg

DRUGS (6)
  1. ARGATROBAN [Suspect]
     Indication: HEPARIN-INDUCED THROMBOCYTOPENIA
     Dosage: 0.5 MG/KG/MIN, UNK
     Route: 041
  2. ASPIRIN [Concomitant]
     Dosage: 81 MG, DAILY
  3. FUROSEMIDE [Concomitant]
     Dosage: 40 MG, 2X/DAY
  4. POTASSIUM CHLORIDE [Concomitant]
     Dosage: 20 MEQ, DAILY
  5. PRAVASTATIN [Concomitant]
     Dosage: 40 MG, DAILY
  6. OLMESARTAN [Concomitant]
     Dosage: 20 MG, DAILY

REACTIONS (1)
  - Epistaxis [Unknown]
